FAERS Safety Report 18915840 (Version 2)
Quarter: 2021Q1

REPORT INFORMATION
  Report Type: Spontaneous
  Country: GB (occurrence: GB)
  Receive Date: 20210219
  Receipt Date: 20210225
  Transmission Date: 20210420
  Serious: Yes (Other)
  Sender: FDA-Public Use
  Company Number: CA-ENDO PHARMACEUTICALS INC-2021-001197

PATIENT
  Age: 14 Year
  Sex: Male

DRUGS (2)
  1. FLUOXETINE HYDROCHLORIDE. [Suspect]
     Active Substance: FLUOXETINE HYDROCHLORIDE
     Indication: PRODUCT USED FOR UNKNOWN INDICATION
     Dosage: UNK UNKNOWN, UNKNOWN
     Route: 065
  2. FLUOXETINE HYDROCHLORIDE. [Suspect]
     Active Substance: FLUOXETINE HYDROCHLORIDE
     Dosage: DOSE INCREASED, UNKNOWN
     Route: 065

REACTIONS (5)
  - Dysarthria [Recovered/Resolved]
  - Transient ischaemic attack [Recovered/Resolved]
  - Sensory disturbance [Recovered/Resolved]
  - Serotonin syndrome [Recovered/Resolved]
  - Hemiplegia [Recovered/Resolved]
